FAERS Safety Report 17828492 (Version 4)
Quarter: 2020Q2

REPORT INFORMATION
  Report Type: Spontaneous
  Country: US (occurrence: US)
  Receive Date: 20200527
  Receipt Date: 20200616
  Transmission Date: 20200714
  Serious: No
  Sender: FDA-Public Use
  Company Number: US-PFIZER INC-2020207586

PATIENT
  Age: 75 Year
  Sex: Female
  Weight: 89.81 kg

DRUGS (1)
  1. IBRANCE [Suspect]
     Active Substance: PALBOCICLIB
     Indication: BREAST CANCER
     Dosage: 125 MG

REACTIONS (5)
  - Malaise [Unknown]
  - Diarrhoea [Unknown]
  - Wrong product administered [Unknown]
  - Nausea [Unknown]
  - Product dispensing error [Unknown]
